FAERS Safety Report 24011756 (Version 1)
Quarter: 2024Q2

REPORT INFORMATION
  Report Type: Other
  Country: IN (occurrence: IN)
  Receive Date: 20240625
  Receipt Date: 20240625
  Transmission Date: 20240715
  Serious: Yes (Life-Threatening)
  Sender: FDA-Public Use
  Company Number: IN-B.Braun Medical Inc.-2158514

PATIENT
  Age: 68 Year
  Sex: Male

DRUGS (3)
  1. GLYCINE [Suspect]
     Active Substance: GLYCINE
  2. BUPIVACAINE [Concomitant]
     Active Substance: BUPIVACAINE\BUPIVACAINE HYDROCHLORIDE
  3. FENTANYL [Concomitant]
     Active Substance: FENTANYL\FENTANYL CITRATE

REACTIONS (1)
  - Transurethral resection syndrome [Recovered/Resolved]
